FAERS Safety Report 14573271 (Version 2)
Quarter: 2018Q1

REPORT INFORMATION
  Report Type: Spontaneous
  Country: FR (occurrence: FR)
  Receive Date: 20180226
  Receipt Date: 20180301
  Transmission Date: 20180509
  Serious: Yes (Other)
  Sender: FDA-Public Use
  Company Number: FR-TEVA-2018-FR-861138

PATIENT
  Age: 36 Year
  Sex: Female

DRUGS (2)
  1. RISPERIDONE. [Suspect]
     Active Substance: RISPERIDONE
     Indication: SCHIZOPHRENIA
     Dosage: 3MG DAILY
     Route: 065
  2. HALOPERIDOL. [Suspect]
     Active Substance: HALOPERIDOL
     Indication: SCHIZOPHRENIA
     Dosage: 11MG DAILY
     Route: 048

REACTIONS (5)
  - Dystonia [Unknown]
  - Restless legs syndrome [Recovered/Resolved]
  - Extrapyramidal disorder [Unknown]
  - Akathisia [Unknown]
  - Condition aggravated [Recovered/Resolved]
